FAERS Safety Report 5824229-0 (Version None)
Quarter: 2008Q3

REPORT INFORMATION
  Report Type: 
  Country: None (occurrence: None)
  Receive Date: 20080722
  Receipt Date: 20080707
  Transmission Date: 20090109
  Serious: Yes (Other)
  Sender: FDA-Public Use
  Company Number: 030747

PATIENT
  Sex: Female

DRUGS (5)
  1. MEDROXYPROGESTERONE ACETATE [Suspect]
     Dosage: ORAL
     Route: 048
     Dates: start: 19960101, end: 20011001
  2. PREMPRO [Suspect]
     Dosage: ORAL
     Route: 048
     Dates: start: 19920101, end: 20011001
  3. CYCRIN [Suspect]
     Dosage: ORAL
     Route: 048
     Dates: start: 19920101, end: 20011001
  4. PREMARIN [Suspect]
     Dosage: ORAL
     Route: 048
     Dates: start: 19920101, end: 20011001
  5. PROVERA [Suspect]
     Dosage: ORAL
     Route: 048
     Dates: start: 19920101, end: 20011001

REACTIONS (3)
  - BREAST CANCER FEMALE [None]
  - METASTASES TO BONE [None]
  - METASTASES TO LIVER [None]
